FAERS Safety Report 23856963 (Version 1)
Quarter: 2024Q2

REPORT INFORMATION
  Report Type: Spontaneous
  Country: FR (occurrence: FR)
  Receive Date: 20240515
  Receipt Date: 20240515
  Transmission Date: 20240716
  Serious: Yes (Other)
  Sender: FDA-Public Use
  Company Number: FR-002147023-NVSC2024FR100846

PATIENT
  Age: 48 Year
  Sex: Female

DRUGS (1)
  1. TOBRADEX [Suspect]
     Active Substance: DEXAMETHASONE\TOBRAMYCIN
     Indication: Product used for unknown indication
     Dosage: 5 ML, QD (1 DROP PER DAY)
     Route: 047
     Dates: start: 202209

REACTIONS (9)
  - Iris haemorrhage [Unknown]
  - Intracranial pressure increased [Unknown]
  - Rhinorrhoea [Unknown]
  - Oropharyngeal pain [Unknown]
  - Fibromyalgia [Unknown]
  - Stomatitis [Unknown]
  - Fungal infection [Unknown]
  - Mouth ulceration [Unknown]
  - Headache [Unknown]
